FAERS Safety Report 5558578-0 (Version None)
Quarter: 2007Q4

REPORT INFORMATION
  Report Type: 
  Country: None (occurrence: None)
  Receive Date: 20071214
  Receipt Date: 20071011
  Transmission Date: 20080405
  Serious: No
  Sender: FDA-Public Use
  Company Number: US-ABBOTT-07P-163-0415772-00

PATIENT
  Sex: Female
  Weight: 34.504 kg

DRUGS (13)
  1. HUMIRA [Suspect]
     Indication: CROHN'S DISEASE
     Dosage: TWO 40 MG INJECTIONS
     Route: 058
     Dates: start: 20070818, end: 20070818
  2. HUMIRA [Suspect]
     Dosage: TWO 40 MG INJECTIONS
     Route: 058
     Dates: start: 20070819, end: 20070819
  3. HUMIRA [Suspect]
  4. PREDNISONE [Concomitant]
     Indication: DRUG USE FOR UNKNOWN INDICATION
  5. PAROXETINE HCL [Concomitant]
     Indication: DRUG USE FOR UNKNOWN INDICATION
  6. FOLIC ACID [Concomitant]
     Indication: DRUG USE FOR UNKNOWN INDICATION
  7. ASPIRIN AND DIPYRIDAMOLE [Concomitant]
     Indication: DRUG USE FOR UNKNOWN INDICATION
     Dosage: 25/200MG
  8. POTASSIUM CHLORIDE [Concomitant]
     Indication: DRUG USE FOR UNKNOWN INDICATION
  9. FENTANYL [Concomitant]
     Indication: DRUG USE FOR UNKNOWN INDICATION
     Route: 061
  10. DIAZEPAM [Concomitant]
     Indication: DRUG USE FOR UNKNOWN INDICATION
  11. ALPRAZOLAM [Concomitant]
     Indication: DRUG USE FOR UNKNOWN INDICATION
  12. ACTNI LOLLIPOPS [Concomitant]
     Indication: PAIN
  13. CHANTIX [Concomitant]
     Indication: SMOKING CESSATION THERAPY

REACTIONS (5)
  - ERYTHEMA [None]
  - FISTULA DISCHARGE [None]
  - IMPAIRED HEALING [None]
  - JOINT SWELLING [None]
  - PYREXIA [None]
